FAERS Safety Report 5149921-5 (Version None)
Quarter: 2006Q4

REPORT INFORMATION
  Report Type: 
  Country: None (occurrence: None)
  Receive Date: 20061113
  Receipt Date: 20061107
  Transmission Date: 20070319
  Serious: Yes (Other)
  Sender: FDA-Public Use
  Company Number: DE-ROXANE LABORATORIES, INC-2006-BP-12977RO

PATIENT
  Age: 63 Year
  Sex: Female

DRUGS (6)
  1. CYCLOPHOSPHAMIDE [Suspect]
     Indication: CHEMOTHERAPY
  2. METHOTREXATE [Suspect]
     Indication: CHEMOTHERAPY
  3. STEROIDS [Suspect]
     Indication: CHEMOTHERAPY
  4. VINCRISTINE [Suspect]
     Indication: CHEMOTHERAPY
  5. CYTARABINE [Suspect]
     Indication: CHEMOTHERAPY
  6. IMATINIB MESYLATE [Suspect]
     Indication: CHEMOTHERAPY

REACTIONS (6)
  - ANOREXIA [None]
  - HYPOSMIA [None]
  - NAUSEA [None]
  - PAROSMIA [None]
  - VOMITING [None]
  - WEIGHT DECREASED [None]
